FAERS Safety Report 21994596 (Version 3)
Quarter: 2023Q2

REPORT INFORMATION
  Report Type: Spontaneous
  Country: US (occurrence: US)
  Receive Date: 20230215
  Receipt Date: 20230419
  Transmission Date: 20230722
  Serious: No
  Sender: FDA-Public Use
  Company Number: US-BEH-2023155055

PATIENT
  Age: 36 Year
  Sex: Female

DRUGS (17)
  1. HIZENTRA [Suspect]
     Active Substance: HUMAN IMMUNOGLOBULIN G
     Indication: Congenital hypogammaglobulinaemia
     Dosage: 4 GRAM
     Route: 065
     Dates: start: 2021
  2. HIZENTRA [Suspect]
     Active Substance: HUMAN IMMUNOGLOBULIN G
     Dosage: 4 GRAM, QW
     Route: 058
     Dates: start: 2021
  3. HIZENTRA [Suspect]
     Active Substance: HUMAN IMMUNOGLOBULIN G
     Dosage: 4 GRAM, QW
     Route: 058
  4. HIZENTRA [Suspect]
     Active Substance: HUMAN IMMUNOGLOBULIN G
     Dosage: 4 GRAM, QW
     Route: 058
     Dates: start: 20230130
  5. CALCIUM +D [CALCIUM CARBONATE;COLECALCIFEROL] [Concomitant]
  6. MINERALS\VITAMINS [Concomitant]
     Active Substance: MINERALS\VITAMINS
  7. CLINDAMYCIN [Concomitant]
     Active Substance: CLINDAMYCIN
  8. FAMOTIDINE [Concomitant]
     Active Substance: FAMOTIDINE
  9. IBUPROFEN [Concomitant]
     Active Substance: IBUPROFEN
  10. LAMOTRIGINE [Concomitant]
     Active Substance: LAMOTRIGINE
  11. LEVOTHYROXINE [Concomitant]
     Active Substance: LEVOTHYROXINE
  12. LORATADINE [Concomitant]
     Active Substance: LORATADINE
  13. LORAZEPAM [Concomitant]
     Active Substance: LORAZEPAM
  14. MAGNESIUM OXIDE [Concomitant]
     Active Substance: MAGNESIUM OXIDE
  15. PHENAZOPYRIDINE [Concomitant]
     Active Substance: PHENAZOPYRIDINE
  16. VITAMIN B2 [Concomitant]
     Active Substance: RIBOFLAVIN
  17. VITAMIN D3 [Concomitant]
     Active Substance: CHOLECALCIFEROL

REACTIONS (10)
  - Fatigue [Recovered/Resolved]
  - Pain [Recovered/Resolved]
  - Fungal skin infection [Recovered/Resolved]
  - Viral infection [Recovered/Resolved]
  - Pain [Recovered/Resolved]
  - Skin infection [Not Recovered/Not Resolved]
  - Fatigue [Not Recovered/Not Resolved]
  - No adverse event [Not Recovered/Not Resolved]
  - Incorrect product administration duration [Not Recovered/Not Resolved]
  - Product use issue [Not Recovered/Not Resolved]

NARRATIVE: CASE EVENT DATE: 20220601
